FAERS Safety Report 7983896-6 (Version None)
Quarter: 2011Q4

REPORT INFORMATION
  Report Type: 
  Country: None (occurrence: None)
  Receive Date: 20111216
  Receipt Date: 20111209
  Transmission Date: 20120403
  Serious: No
  Sender: FDA-Public Use
  Company Number: US-BIOGENIDEC-2011BI046936

PATIENT
  Age: 61 Year
  Sex: Female

DRUGS (2)
  1. TYSABRI [Suspect]
     Indication: MULTIPLE SCLEROSIS
     Route: 042
     Dates: start: 20111031
  2. CYMBALTA [Concomitant]
     Indication: DEPRESSION
     Dates: start: 20090101

REACTIONS (3)
  - CRYING [None]
  - MUSCULOSKELETAL CHEST PAIN [None]
  - DEPRESSION [None]
